FAERS Safety Report 7626319-9 (Version None)
Quarter: 2011Q3

REPORT INFORMATION
  Report Type: 
  Country: None (occurrence: None)
  Receive Date: 20110721
  Receipt Date: 20110715
  Transmission Date: 20111222
  Serious: Yes (Hospitalization)
  Sender: FDA-Public Use
  Company Number: US-US-EMD SERONO, INC.-7038608

PATIENT
  Sex: Male

DRUGS (3)
  1. ABLIIFY [Concomitant]
     Indication: COGNITIVE DISORDER
     Dates: start: 20080501
  2. REBIF [Suspect]
     Indication: MULTIPLE SCLEROSIS
     Route: 058
     Dates: start: 20070401, end: 20080501
  3. COPAXONE [Concomitant]
     Indication: MULTIPLE SCLEROSIS
     Dates: start: 20080628, end: 20090101

REACTIONS (1)
  - CONVULSION [None]
